FAERS Safety Report 5042519-9 (Version None)
Quarter: 2006Q2

REPORT INFORMATION
  Report Type: 
  Country: None (occurrence: None)
  Receive Date: 20060627
  Receipt Date: 20060614
  Transmission Date: 20061013
  Serious: Yes (Hospitalization, Other)
  Sender: FDA-Public Use
  Company Number: 2006-05-2226

PATIENT
  Age: 59 Year
  Sex: Male
  Weight: 55 kg

DRUGS (8)
  1. PEG-INTRON [Suspect]
     Indication: HEPATITIS C
     Dosage: 100 MCG QW SUBCUTANEOUS
     Route: 058
     Dates: start: 20060107, end: 20060428
  2. REBETOL [Suspect]
     Indication: HEPATITIS C
     Dosage: 800 MG ORAL
     Route: 048
     Dates: start: 20060107, end: 20060428
  3. DOGMATYL [Concomitant]
  4. DIOVAN [Concomitant]
  5. URSO [Concomitant]
  6. LOXONIN [Concomitant]
  7. ALESION (EPINASTINE HYDROCHLORIDE) [Concomitant]
  8. ALLOPURINOL [Concomitant]

REACTIONS (10)
  - ANXIETY [None]
  - ASTHENIA [None]
  - BRAIN STEM INFARCTION [None]
  - CAROTID ARTERY STENOSIS [None]
  - CEREBRAL INFARCTION [None]
  - DEPRESSION [None]
  - DIZZINESS [None]
  - HYPOAESTHESIA [None]
  - INSOMNIA [None]
  - MOTOR DYSFUNCTION [None]
